FAERS Safety Report 6492464-7 (Version None)
Quarter: 2009Q4

REPORT INFORMATION
  Report Type: 
  Country: None (occurrence: None)
  Receive Date: 20091214
  Receipt Date: 20091202
  Transmission Date: 20100525
  Serious: Yes (Death)
  Sender: FDA-Public Use
  Company Number: US-PFIZER INC-2009276549

PATIENT

DRUGS (1)
  1. SUTENT [Suspect]

REACTIONS (1)
  - DEATH [None]
